FAERS Safety Report 22318501 (Version 1)
Quarter: 2023Q2

REPORT INFORMATION
  Report Type: Spontaneous
  Country: US (occurrence: US)
  Receive Date: 20230515
  Receipt Date: 20230515
  Transmission Date: 20230722
  Serious: Yes (Other)
  Sender: FDA-Public Use
  Company Number: US-drreddys-SPO/USA/23/0164782

PATIENT
  Age: 49 Year
  Sex: Female

DRUGS (8)
  1. LETROZOLE [Suspect]
     Active Substance: LETROZOLE
     Indication: Invasive ductal breast carcinoma
  2. LETROZOLE [Suspect]
     Active Substance: LETROZOLE
     Indication: Hormone receptor positive HER2 negative breast cancer
  3. PALBOCICLIB [Suspect]
     Active Substance: PALBOCICLIB
     Indication: Hormone receptor positive HER2 negative breast cancer
  4. PALBOCICLIB [Suspect]
     Active Substance: PALBOCICLIB
     Indication: Invasive ductal breast carcinoma
  5. ZOLEDRONIC ACID [Concomitant]
     Active Substance: ZOLEDRONIC ACID
     Indication: Hormone receptor positive HER2 negative breast cancer
  6. ZOLEDRONIC ACID [Concomitant]
     Active Substance: ZOLEDRONIC ACID
     Indication: Invasive ductal breast carcinoma
  7. GOSERELIN [Concomitant]
     Active Substance: GOSERELIN
     Indication: Invasive ductal breast carcinoma
  8. GOSERELIN [Concomitant]
     Active Substance: GOSERELIN
     Indication: Hormone receptor positive HER2 negative breast cancer

REACTIONS (5)
  - Neuropathy peripheral [Unknown]
  - Constipation [Unknown]
  - Fatigue [Unknown]
  - Anxiety [Recovering/Resolving]
  - Nausea [Unknown]
